FAERS Safety Report 8247089 (Version 4)
Quarter: 2017Q1

REPORT INFORMATION
  Report Type: Report from Study
  Country: US (occurrence: US)
  Receive Date: 20111116
  Receipt Date: 20170216
  Transmission Date: 20170429
  Serious: Yes (Death, Hospitalization)
  Sender: FDA-Public Use
  Company Number: US-CELGENEUS-163-21880-08101543

PATIENT
  Age: 56 Year
  Sex: Male

DRUGS (11)
  1. REVLIMID [Suspect]
     Active Substance: LENALIDOMIDE
     Indication: CHRONIC LYMPHOCYTIC LEUKAEMIA
     Dosage: 2.5 MILLIGRAM
     Route: 048
     Dates: start: 20080423, end: 20081020
  2. LORTAB [Concomitant]
     Active Substance: ACETAMINOPHEN\HYDROCODONE BITARTRATE
     Indication: PAIN
     Dosage: 7.5/500MG
     Route: 048
  3. SINGULAIR [Concomitant]
     Active Substance: MONTELUKAST SODIUM
     Indication: HYPERSENSITIVITY
     Dosage: 10 MILLIGRAM
     Route: 048
     Dates: end: 20081102
  4. NEXIUM [Concomitant]
     Active Substance: ESOMEPRAZOLE MAGNESIUM
     Indication: ABDOMINAL DISCOMFORT
     Dosage: 40 MILLIGRAM
     Route: 048
     Dates: end: 20081102
  5. CREON-10 [Concomitant]
     Indication: PANCREATIC ENZYMES
     Dosage: 2 CAPSULE
     Route: 048
     Dates: end: 20081102
  6. SYNTHROID [Concomitant]
     Active Substance: LEVOTHYROXINE SODIUM
     Indication: THYROID DISORDER
     Dosage: 200 MICROGRAM
     Route: 048
     Dates: end: 20081103
  7. LEVAQUIN [Concomitant]
     Active Substance: LEVOFLOXACIN
     Indication: INFECTION PROPHYLAXIS
     Dosage: 500 MILLIGRAM
     Route: 048
     Dates: end: 20081102
  8. XELODA [Concomitant]
     Active Substance: CAPECITABINE
     Indication: PANCREATIC CARCINOMA METASTATIC
     Route: 065
     Dates: start: 20090205
  9. DECADRON [Concomitant]
     Active Substance: DEXAMETHASONE
     Indication: INCREASED APPETITE
     Dosage: 2 MILLIGRAM
     Route: 048
  10. TRIAMCINOLONE [Concomitant]
     Active Substance: TRIAMCINOLONE
     Indication: RASH
     Dosage: .2 PERCENT
     Route: 061
     Dates: end: 20081102
  11. LUPRON [Concomitant]
     Active Substance: LEUPROLIDE ACETATE
     Indication: PROSTATE CANCER
     Route: 065

REACTIONS (1)
  - Pancreatic carcinoma metastatic [Fatal]

NARRATIVE: CASE EVENT DATE: 20081024
